FAERS Safety Report 19117302 (Version 5)
Quarter: 2021Q2

REPORT INFORMATION
  Report Type: Spontaneous
  Country: SI (occurrence: SI)
  Receive Date: 20210409
  Receipt Date: 20210520
  Transmission Date: 20210717
  Serious: Yes (Other)
  Sender: FDA-Public Use
  Company Number: SI-ROCHE-2808327

PATIENT
  Sex: Female

DRUGS (8)
  1. PLIVIT D3 [Concomitant]
     Active Substance: CHOLECALCIFEROL
     Indication: PRODUCT USED FOR UNKNOWN INDICATION
     Dosage: 1 DF (4000 IU/ML)
     Route: 065
  2. SANVAL [Concomitant]
     Active Substance: ZOLPIDEM TARTRATE
     Indication: PRODUCT USED FOR UNKNOWN INDICATION
     Dosage: UNK
     Route: 065
  3. BEOVU [Suspect]
     Active Substance: BROLUCIZUMAB-DBLL
     Indication: NEOVASCULAR AGE-RELATED MACULAR DEGENERATION
     Route: 031
     Dates: start: 20210304
  4. ENAP [Concomitant]
     Active Substance: ENALAPRIL
     Indication: PRODUCT USED FOR UNKNOWN INDICATION
     Dosage: UNK
     Route: 065
  5. LUCENTIS [Suspect]
     Active Substance: RANIBIZUMAB
     Indication: NEOVASCULAR AGE-RELATED MACULAR DEGENERATION
     Dosage: UNK (RIGHT EYE)
     Route: 065
     Dates: start: 20210304
  6. PROLIA [Concomitant]
     Active Substance: DENOSUMAB
     Indication: PRODUCT USED FOR UNKNOWN INDICATION
     Dosage: UNK
     Route: 065
  7. CONCOR [Concomitant]
     Active Substance: BISOPROLOL FUMARATE
     Indication: PRODUCT USED FOR UNKNOWN INDICATION
     Dosage: UNK
     Route: 065
  8. PRADAXA [Concomitant]
     Active Substance: DABIGATRAN ETEXILATE MESYLATE
     Indication: PRODUCT USED FOR UNKNOWN INDICATION
     Dosage: UNK
     Route: 065

REACTIONS (16)
  - Anterior chamber cell [Unknown]
  - Retinal vascular occlusion [Recovered/Resolved]
  - Detachment of retinal pigment epithelium [Unknown]
  - Visual impairment [Unknown]
  - Retinal vasculitis [Recovered/Resolved]
  - Retinal exudates [Unknown]
  - Keratic precipitates [Unknown]
  - Retinal vascular disorder [Recovering/Resolving]
  - Retinal artery stenosis [Unknown]
  - Visual field defect [Unknown]
  - Conjunctival haemorrhage [Unknown]
  - Vitreous floaters [Recovering/Resolving]
  - Retinal drusen [Unknown]
  - Visual acuity reduced transiently [Recovering/Resolving]
  - Uveitis [Recovering/Resolving]
  - Vitreous haze [Not Recovered/Not Resolved]

NARRATIVE: CASE EVENT DATE: 20210308
